FAERS Safety Report 13597720 (Version 1)
Quarter: 2017Q2

REPORT INFORMATION
  Report Type: Spontaneous
  Country: DE (occurrence: DE)
  Receive Date: 20170531
  Receipt Date: 20170531
  Transmission Date: 20170830
  Serious: Yes (Other)
  Sender: FDA-Public Use
  Company Number: DE-TEVA-771790GER

PATIENT
  Age: 35 Year
  Sex: Female

DRUGS (2)
  1. TRENANTONE [Concomitant]
     Active Substance: LEUPROLIDE ACETATE
     Indication: BREAST CANCER
     Route: 042
     Dates: start: 201610
  2. TAMOXIFEN 20 [Suspect]
     Active Substance: TAMOXIFEN
     Indication: BREAST CANCER
     Route: 048
     Dates: start: 201609

REACTIONS (2)
  - Retinal tear [Recovered/Resolved]
  - Retinal detachment [Unknown]

NARRATIVE: CASE EVENT DATE: 20170317
